FAERS Safety Report 9696867 (Version 2)
Quarter: 2015Q3

REPORT INFORMATION
  Report Type: Spontaneous
  Country: US (occurrence: US)
  Receive Date: 20131119
  Receipt Date: 20150803
  Transmission Date: 20151125
  Serious: No
  Sender: FDA-Public Use
  Company Number: US-GILEAD-2007-0013811

PATIENT
  Sex: Female
  Weight: 82.1 kg

DRUGS (14)
  1. MAG-OXIDE [Concomitant]
     Route: 048
  2. CELEBREX [Concomitant]
     Active Substance: CELECOXIB
     Route: 048
  3. ELAVIL [Concomitant]
     Active Substance: AMITRIPTYLINE HYDROCHLORIDE
     Route: 048
  4. COMMIT [Concomitant]
     Active Substance: NICOTINE
     Route: 048
  5. AVANDIA [Concomitant]
     Active Substance: ROSIGLITAZONE MALEATE
     Route: 048
  6. GLUCOPHAGE [Concomitant]
     Active Substance: METFORMIN HYDROCHLORIDE
     Route: 048
  7. LASIX [Concomitant]
     Active Substance: FUROSEMIDE
     Route: 048
  8. PARACETAMOL/HYDROCODONE BITARTRATE [Concomitant]
     Dosage: 5-500 MG PRN
     Route: 048
  9. VENTAVIS [Concomitant]
     Active Substance: ILOPROST
     Dosage: 10 MCG/ML 6-9XD
     Route: 055
  10. HUMULIN N [Concomitant]
     Active Substance: INSULIN HUMAN
     Route: 058
  11. VALIUM [Concomitant]
     Active Substance: DIAZEPAM
     Route: 048
  12. LETAIRIS [Suspect]
     Active Substance: AMBRISENTAN
     Indication: PULMONARY ARTERIAL HYPERTENSION
     Route: 048
  13. POTASSIUM CHLORIDE. [Concomitant]
     Active Substance: POTASSIUM CHLORIDE
     Route: 048
  14. TRACLEER [Concomitant]
     Active Substance: BOSENTAN
     Route: 048

REACTIONS (1)
  - Gastrointestinal disorder [Unknown]
